FAERS Safety Report 9303890 (Version 1)
Quarter: 2013Q2

REPORT INFORMATION
  Report Type: Spontaneous
  Country: BR (occurrence: BR)
  Receive Date: 20130522
  Receipt Date: 20130522
  Transmission Date: 20140414
  Serious: Yes (Other)
  Sender: FDA-Public Use
  Company Number: BR-ASTRAZENECA-2013SE34655

PATIENT
  Sex: 0

DRUGS (2)
  1. TICAGRELOR [Suspect]
     Indication: THROMBOSIS PROPHYLAXIS
     Route: 048
  2. POLYMEDICATED [Concomitant]

REACTIONS (2)
  - Thrombosis in device [Unknown]
  - Intentional drug misuse [Unknown]
